FAERS Safety Report 23443319 (Version 1)
Quarter: 2024Q1

REPORT INFORMATION
  Report Type: Spontaneous
  Country: US (occurrence: US)
  Receive Date: 20240125
  Receipt Date: 20240125
  Transmission Date: 20240410
  Serious: Yes (Hospitalization, Other)
  Sender: FDA-Public Use
  Company Number: US-PFIZER INC-202400022541

PATIENT
  Age: 44 Year
  Sex: Male

DRUGS (4)
  1. RITUXIMAB [Suspect]
     Active Substance: RITUXIMAB
     Indication: Granulomatosis with polyangiitis
     Dosage: 1 G (2 WEEKS APART)
     Route: 042
  2. RITUXIMAB [Suspect]
     Active Substance: RITUXIMAB
     Dosage: 1 G (2 WEEKS APART)
     Route: 042
  3. MYCOPHENOLATE MOFETIL [Concomitant]
     Active Substance: MYCOPHENOLATE MOFETIL
     Indication: Granulomatosis with polyangiitis
     Dosage: 1.5 G, 2X/DAY
  4. PREDNISONE [Concomitant]
     Active Substance: PREDNISONE
     Indication: Granulomatosis with polyangiitis
     Dosage: 40 MG, DAILY

REACTIONS (3)
  - Drug ineffective [Recovering/Resolving]
  - Pleural effusion [Recovering/Resolving]
  - Renal failure [Recovering/Resolving]
